FAERS Safety Report 5546707-4 (Version None)
Quarter: 2007Q4

REPORT INFORMATION
  Report Type: 
  Country: None (occurrence: None)
  Receive Date: 20071211
  Receipt Date: 20071206
  Transmission Date: 20080405
  Serious: Yes (Other)
  Sender: FDA-Public Use
  Company Number: US-JNJFOC-20071202624

PATIENT
  Age: 56 Year
  Sex: Male

DRUGS (2)
  1. ULTRAM ER [Suspect]
     Indication: BACK PAIN
     Route: 048
  2. AMITRIPTLINE HCL [Concomitant]
     Indication: PAIN
     Route: 065

REACTIONS (2)
  - INSOMNIA [None]
  - PROSTATIC SPECIFIC ANTIGEN INCREASED [None]
